FAERS Safety Report 5303647-3 (Version None)
Quarter: 2007Q2

REPORT INFORMATION
  Report Type: 
  Country: None (occurrence: None)
  Receive Date: 20070420
  Receipt Date: 20070413
  Transmission Date: 20071010
  Serious: Yes (Hospitalization)
  Sender: FDA-Public Use
  Company Number: US-SHR-US-2007-013160

PATIENT
  Age: 59 Year
  Sex: Female
  Weight: 54 kg

DRUGS (1)
  1. ULTRAVIST 300 [Suspect]
     Dosage: 50 ML, 1 DOSE
     Route: 042
     Dates: start: 20070413, end: 20070413

REACTIONS (7)
  - CHOKING SENSATION [None]
  - DYSPHAGIA [None]
  - DYSPNOEA [None]
  - EYELID OEDEMA [None]
  - NASAL CONGESTION [None]
  - RASH [None]
  - SNEEZING [None]
